FAERS Safety Report 16825767 (Version 1)
Quarter: 2019Q3

REPORT INFORMATION
  Report Type: Spontaneous
  Country: CA (occurrence: CA)
  Receive Date: 20190919
  Receipt Date: 20190919
  Transmission Date: 20191005
  Serious: Yes (Other)
  Sender: FDA-Public Use
  Company Number: CA-ORION CORPORATION ORION PHARMA-TREX2019-3507

PATIENT
  Age: 74 Year
  Sex: Female

DRUGS (2)
  1. XELJANZ [Concomitant]
     Active Substance: TOFACITINIB CITRATE
     Route: 065
  2. METHOTREXATE (TRADE NAME UNKNOWN) [Suspect]
     Active Substance: METHOTREXATE
     Indication: PRODUCT USED FOR UNKNOWN INDICATION
     Dosage: DOSES VARY
     Route: 065
     Dates: start: 199811, end: 201507

REACTIONS (1)
  - Hepatic cancer [Unknown]

NARRATIVE: CASE EVENT DATE: 2015
